FAERS Safety Report 12195071 (Version 1)
Quarter: 2016Q1

REPORT INFORMATION
  Report Type: Spontaneous
  Country: US (occurrence: US)
  Receive Date: 20160321
  Receipt Date: 20160321
  Transmission Date: 20160526
  Serious: No
  Sender: FDA-Public Use
  Company Number: US-TEVA-610345USA

PATIENT
  Sex: Female

DRUGS (2)
  1. ESCITALOPRAM [Suspect]
     Active Substance: ESCITALOPRAM OXALATE
     Indication: ANXIETY
  2. ESCITALOPRAM [Suspect]
     Active Substance: ESCITALOPRAM OXALATE
     Indication: DEPRESSION
     Route: 065
     Dates: start: 20151015

REACTIONS (10)
  - Anxiety [Unknown]
  - Feeling abnormal [Unknown]
  - Somnolence [Unknown]
  - Tremor [Unknown]
  - Crying [Unknown]
  - Heart rate increased [Unknown]
  - Vomiting [Unknown]
  - Product substitution issue [Unknown]
  - Panic attack [Unknown]
  - Nausea [Unknown]

NARRATIVE: CASE EVENT DATE: 201510
